FAERS Safety Report 13578721 (Version 1)
Quarter: 2017Q2

REPORT INFORMATION
  Report Type: Report from Study
  Country: None (occurrence: BR)
  Receive Date: 20170524
  Receipt Date: 20170524
  Transmission Date: 20170830
  Serious: Yes (Other)
  Sender: FDA-Public Use
  Company Number: BR-ABBVIE-17K-020-1985521-00

PATIENT
  Sex: Female
  Weight: 68 kg

DRUGS (3)
  1. AZATHIOPRINE. [Concomitant]
     Active Substance: AZATHIOPRINE
     Indication: COLITIS ULCERATIVE
     Route: 048
     Dates: start: 201503
  2. HUMIRA [Suspect]
     Active Substance: ADALIMUMAB
     Indication: CROHN^S DISEASE
     Route: 058
     Dates: start: 20131201, end: 201503
  3. MESACOL [Concomitant]
     Active Substance: MESALAMINE
     Indication: COLITIS ULCERATIVE
     Route: 048
     Dates: start: 201503

REACTIONS (4)
  - Gastrointestinal inflammation [Recovering/Resolving]
  - Gastric polyps [Recovered/Resolved]
  - Intestinal polyp [Recovered/Resolved]
  - Gastrointestinal stenosis [Recovering/Resolving]

NARRATIVE: CASE EVENT DATE: 2013
